FAERS Safety Report 16726168 (Version 2)
Quarter: 2019Q3

REPORT INFORMATION
  Report Type: Spontaneous
  Country: US (occurrence: US)
  Receive Date: 20190821
  Receipt Date: 20190903
  Transmission Date: 20191005
  Serious: Yes (Disabling, Other)
  Sender: FDA-Public Use
  Company Number: US-ELI_LILLY_AND_COMPANY-US201908005881

PATIENT
  Sex: Female

DRUGS (1)
  1. HUMALOG MIX75/25 [Suspect]
     Active Substance: INSULIN LISPRO
     Indication: TYPE 2 DIABETES MELLITUS
     Dosage: UNK, UNKNOWN
     Route: 058

REACTIONS (7)
  - Eye disorder [Not Recovered/Not Resolved]
  - Limb injury [Not Recovered/Not Resolved]
  - Chemical burns of eye [Not Recovered/Not Resolved]
  - Sarcoidosis [Unknown]
  - Retinal disorder [Not Recovered/Not Resolved]
  - Anxiety [Unknown]
  - Panic reaction [Unknown]

NARRATIVE: CASE EVENT DATE: 2005
